FAERS Safety Report 23848821 (Version 3)
Quarter: 2024Q2

REPORT INFORMATION
  Report Type: Report from Study
  Country: IT (occurrence: IT)
  Receive Date: 20240513
  Receipt Date: 20240621
  Transmission Date: 20240716
  Serious: Yes (Other)
  Sender: FDA-Public Use
  Company Number: IT-BRISTOL-MYERS SQUIBB COMPANY-2024-046956

PATIENT
  Age: 66 Year
  Sex: Female
  Weight: 48 kg

DRUGS (8)
  1. PEMETREXED [Suspect]
     Active Substance: PEMETREXED
     Indication: Non-small cell lung cancer
     Dosage: 580 MILLIGRAM
     Route: 065
     Dates: start: 20240124, end: 20240216
  2. CARBOPLATIN [Suspect]
     Active Substance: CARBOPLATIN
     Indication: Non-small cell lung cancer
     Dosage: 380 MILLIGRAM
     Route: 065
     Dates: start: 20240124, end: 20240216
  3. NIVOLUMAB [Suspect]
     Active Substance: NIVOLUMAB
     Indication: Non-small cell lung cancer
     Dosage: 360 MILLIGRAM, Q3W
     Route: 042
     Dates: start: 20240124
  4. IPILIMUMAB [Suspect]
     Active Substance: IPILIMUMAB
     Indication: Non-small cell lung cancer
     Dosage: 50 MILLIGRAM, 6 WEEK
     Route: 042
     Dates: start: 20240124
  5. Folina [Concomitant]
     Indication: Product used for unknown indication
     Dosage: 5 MILLIGRAM (1 DIE)
     Route: 048
     Dates: start: 20240101
  6. BISOPROLOL FUMARATE [Concomitant]
     Active Substance: BISOPROLOL FUMARATE
     Indication: Hypertension
     Dosage: 2.5 MILLIGRAM, QD (THERAPY START DATE: 01-JAN-1900)
     Route: 048
  7. BROTIZOLAM [Concomitant]
     Active Substance: BROTIZOLAM
     Indication: Product used for unknown indication
     Dosage: 0.25 MILLIGRAM (30 CPR1 DIETHERAPY START DATE: 01-JAN-1900)
     Route: 048
     Dates: end: 20240227
  8. Dobetin [Concomitant]
     Indication: Product used for unknown indication
     Dosage: 1000 MICROGRAM, BIMONTHLY (INJECT 5 VIALS 1000 MCG 1 ML THERAPY START DATE: 01-JAN-1900)
     Route: 030
     Dates: end: 20240109

REACTIONS (7)
  - Hyperthyroidism [Recovering/Resolving]
  - Productive cough [Recovered/Resolved]
  - Hypomagnesaemia [Recovered/Resolved]
  - Back pain [Recovered/Resolved]
  - Periorbital oedema [Recovering/Resolving]
  - Oedema peripheral [Recovering/Resolving]
  - Pain [Recovering/Resolving]

NARRATIVE: CASE EVENT DATE: 20240304
